FAERS Safety Report 23736453 (Version 2)
Quarter: 2024Q2

REPORT INFORMATION
  Report Type: Spontaneous
  Country: PT (occurrence: PT)
  Receive Date: 20240412
  Receipt Date: 20240419
  Transmission Date: 20240716
  Serious: Yes (Death, Hospitalization, Other)
  Sender: FDA-Public Use
  Company Number: PT-BAXTER-2024VAN016113

PATIENT
  Age: 73 Year
  Sex: Female

DRUGS (16)
  1. EXTRANEAL [Suspect]
     Active Substance: CALCIUM CHLORIDE\ICODEXTRIN\MAGNESIUM CHLORIDE\SODIUM CHLORIDE\SODIUM LACTATE
     Dosage: 2L, 1 EXCHANGES DAILY
     Route: 033
  2. CALCIUM CL\DEXTROSE\MAGNESIUM CL\SODIUM BICAR\SODIUM CL\SODIUM LACT [Suspect]
     Active Substance: CALCIUM CHLORIDE\DEXTROSE MONOHYDRATE\MAGNESIUM CHLORIDE\SODIUM BICARBONATE\SODIUM CHLORIDE\SODIUM L
     Dosage: 2L, 2 EXCHANGES DAILY
     Route: 033
  3. FUROSEMIDE [Concomitant]
     Active Substance: FUROSEMIDE
     Dosage: 2 TAB PER DAY
     Route: 065
  4. Dagravit [Concomitant]
     Dosage: 1 TAB PER DAY
     Route: 065
  5. FERROUS SULFATE [Concomitant]
     Active Substance: FERROUS SULFATE
     Dosage: 1 PLUS 1 TAB PER DAY
     Route: 065
  6. ZOLPIDEM [Concomitant]
     Active Substance: ZOLPIDEM TARTRATE
     Dosage: 10MG 1 TAB
     Route: 065
  7. ERYTHROPOIETIN [Concomitant]
     Active Substance: ERYTHROPOIETIN
     Dosage: 10000 UNITS NOT REPORTED ONCE A WEEK
     Route: 065
  8. TRAZODONE HYDROCHLORIDE [Concomitant]
     Active Substance: TRAZODONE HYDROCHLORIDE
     Dosage: 150 MG 1 TAB A DAY
     Route: 065
  9. SERTRALINE [Concomitant]
     Active Substance: SERTRALINE HYDROCHLORIDE
     Dosage: 50 MG 1 TAB DAY
     Route: 065
  10. PANTOPRAZOLE SODIUM [Concomitant]
     Active Substance: PANTOPRAZOLE SODIUM
     Dosage: 20 MG ON EMPTY STOMACH
     Route: 065
  11. MEDROL [Concomitant]
     Active Substance: METHYLPREDNISOLONE
     Dosage: 1 PLUS 1 TAB DAY
     Route: 065
  12. LETTER [Concomitant]
     Dosage: 1 TAB 0.1 (UNIT NOT REPORTED) + 1 TAB 0.025 (UNIT NOT REPORTED)
     Route: 065
  13. ATORVASTATIN [Concomitant]
     Active Substance: ATORVASTATIN
     Dosage: 40 MG 1 TAB DAY
     Route: 065
  14. ALLOPURINOL [Concomitant]
     Active Substance: ALLOPURINOL
     Dosage: 100 MG 1 TAB DAY
     Route: 065
  15. FOLIC ACID [Concomitant]
     Active Substance: FOLIC ACID
     Dosage: 1 TAB DAY
     Route: 065
  16. CALCIUM ACETATE [Concomitant]
     Active Substance: CALCIUM ACETATE
     Dosage: 500MG 2 PLUS 2 PLUS 2 TAB DAY
     Route: 065

REACTIONS (6)
  - Peritonitis [Fatal]
  - Peritoneal cloudy effluent [Fatal]
  - Emphysematous pyelonephritis [Unknown]
  - Food refusal [Unknown]
  - Purulent discharge [Unknown]
  - Complication associated with device [Unknown]

NARRATIVE: CASE EVENT DATE: 20240314
